FAERS Safety Report 8784830 (Version 2)
Quarter: 2013Q1

REPORT INFORMATION
  Report Type: Report from Study
  Country: LT (occurrence: LT)
  Receive Date: 20120914
  Receipt Date: 20130219
  Transmission Date: 20140127
  Serious: Yes (Life-Threatening, Hospitalization)
  Sender: FDA-Public Use
  Company Number: LT-BRISTOL-MYERS SQUIBB COMPANY-16940876

PATIENT
  Age: 42 Year
  Sex: Female
  Weight: 48 kg

DRUGS (4)
  1. PACLITAXEL [Suspect]
     Indication: OVARIAN CANCER
     Dosage: ON 9MAY2012 DOSE REDUCED TO 201MG ONCE/3WEEKS?INTRPD ON:23JUL2012(76DAYS).
     Route: 042
     Dates: start: 20120328
  2. CARBOPLATIN [Suspect]
     Indication: OVARIAN CANCER
     Dosage: ON 9MAY2012 DOSE REDUCED TO 685MG ONCE/3WEEKS.?INTRPD ON:23JUL2012(76DAYS).
     Route: 042
     Dates: start: 20120328
  3. BEVACIZUMAB [Suspect]
     Indication: OVARIAN CANCER
     Dosage: INTRPD ON:23JUL2012.
     Route: 042
     Dates: start: 20120328
  4. FILGRASTIM [Concomitant]
     Dates: start: 20120402

REACTIONS (2)
  - Thrombocytopenia [Recovered/Resolved]
  - Anaemia [Recovered/Resolved]
